FAERS Safety Report 15932477 (Version 1)
Quarter: 2019Q1

REPORT INFORMATION
  Report Type: Spontaneous
  Country: US (occurrence: US)
  Receive Date: 20190207
  Receipt Date: 20190207
  Transmission Date: 20190417
  Serious: No
  Sender: FDA-Public Use
  Company Number: US-PFIZER INC-2019052084

PATIENT
  Age: 62 Year
  Sex: Female

DRUGS (1)
  1. GENOTROPIN MQ [Suspect]
     Active Substance: SOMATROPIN
     Indication: OSTEOPOROSIS
     Dosage: 0.8 MG, (0.8MG 6 DAYS A WEEK)
     Dates: start: 20120115

REACTIONS (4)
  - Product use in unapproved indication [Unknown]
  - Hyperhidrosis [Unknown]
  - Globulins decreased [Unknown]
  - Eosinophil count decreased [Unknown]
